FAERS Safety Report 7305645-7 (Version None)
Quarter: 2011Q1

REPORT INFORMATION
  Report Type: 
  Country: None (occurrence: None)
  Receive Date: 20110222
  Receipt Date: 20110214
  Transmission Date: 20110831
  Serious: Yes (Hospitalization, Congenital Anomaly)
  Sender: FDA-Public Use
  Company Number: A0687230A

PATIENT
  Sex: Female
  Weight: 3.9 kg

DRUGS (5)
  1. PRENATAL VITAMINS [Concomitant]
     Route: 064
  2. ZOFRAN [Concomitant]
     Route: 064
  3. MYLANTA [Concomitant]
     Route: 064
  4. PAXIL [Suspect]
     Dosage: 20MG PER DAY
     Route: 064
     Dates: start: 20011201, end: 20030101
  5. TUMS [Concomitant]
     Route: 064

REACTIONS (5)
  - DRUG EXPOSURE DURING PREGNANCY [None]
  - CARDIAC MURMUR [None]
  - RESPIRATORY DISTRESS [None]
  - PNEUMOTHORAX [None]
  - NEONATAL RESPIRATORY DISTRESS SYNDROME [None]
